FAERS Safety Report 14268915 (Version 3)
Quarter: 2018Q3

REPORT INFORMATION
  Report Type: Spontaneous
  Country: GB (occurrence: GB)
  Receive Date: 20171211
  Receipt Date: 20180816
  Transmission Date: 20181010
  Serious: Yes (Death, Hospitalization, Other)
  Sender: FDA-Public Use
  Company Number: GB-TAKEDA-2017TEU005225

PATIENT
  Sex: Female

DRUGS (3)
  1. LANSOPRAZOLE. [Suspect]
     Active Substance: LANSOPRAZOLE
     Indication: PRODUCT USED FOR UNKNOWN INDICATION
     Dosage: UNK
     Route: 065
  2. ALCOHOL. [Suspect]
     Active Substance: ALCOHOL
     Indication: PRODUCT USED FOR UNKNOWN INDICATION
     Dosage: UNK
     Route: 065
  3. PREGABALIN. [Suspect]
     Active Substance: PREGABALIN
     Indication: PRODUCT USED FOR UNKNOWN INDICATION
     Dosage: UNK
     Route: 048

REACTIONS (10)
  - Overdose [Fatal]
  - Toxicity to various agents [Fatal]
  - Death [Fatal]
  - Head banging [Fatal]
  - Injury [Fatal]
  - Anger [Fatal]
  - Drug level increased [Fatal]
  - Fall [Fatal]
  - Foaming at mouth [Fatal]
  - Screaming [Fatal]
